FAERS Safety Report 9164142 (Version 1)
Quarter: 2013Q1

REPORT INFORMATION
  Report Type: Spontaneous
  Country: US (occurrence: US)
  Receive Date: 20130315
  Receipt Date: 20130315
  Transmission Date: 20140127
  Serious: No
  Sender: FDA-Public Use
  Company Number: US-009507513-1303USA006512

PATIENT
  Age: 71 Year
  Sex: Female

DRUGS (3)
  1. CLARINEX-D-12 [Suspect]
     Indication: RESPIRATORY TRACT CONGESTION
     Dosage: SUSTAINED ACTION
  2. MONTELUKAST SODIUM [Concomitant]
  3. ADVAIR [Concomitant]

REACTIONS (4)
  - Swollen tongue [Unknown]
  - Lip swelling [Unknown]
  - Chest pain [Unknown]
  - Dyspnoea [Unknown]
